FAERS Safety Report 7388689-9 (Version None)
Quarter: 2011Q2

REPORT INFORMATION
  Report Type: 
  Country: None (occurrence: None)
  Receive Date: 20110401
  Receipt Date: 20110322
  Transmission Date: 20111010
  Serious: Yes (Hospitalization)
  Sender: FDA-Public Use
  Company Number: NL-MEDIMMUNE-MEDI-0012994

PATIENT
  Sex: Male
  Weight: 7.2 kg

DRUGS (5)
  1. SYNAGIS [Suspect]
     Route: 030
     Dates: start: 20101130, end: 20110223
  2. FUROSEMIDE [Concomitant]
  3. SPIRONOLACTONE [Concomitant]
  4. SYNAGIS [Suspect]
     Route: 030
     Dates: start: 20110322, end: 20110322
  5. AMMONIUM CHLORIDE [Concomitant]

REACTIONS (5)
  - OXYGEN CONSUMPTION INCREASED [None]
  - OLIGODIPSIA [None]
  - INFLUENZA [None]
  - ILL-DEFINED DISORDER [None]
  - BODY TEMPERATURE INCREASED [None]
